FAERS Safety Report 22261020 (Version 1)
Quarter: 2023Q2

REPORT INFORMATION
  Report Type: Report from Study
  Country: IT (occurrence: IT)
  Receive Date: 20230427
  Receipt Date: 20230427
  Transmission Date: 20230722
  Serious: Yes (Hospitalization, Other)
  Sender: FDA-Public Use
  Company Number: None

PATIENT
  Age: 65 Year
  Sex: Female
  Weight: 82 kg

DRUGS (4)
  1. XANAX [Suspect]
     Active Substance: ALPRAZOLAM
     Indication: Anxiety
     Dosage: INITIALLY 0.50 MG 3/DAY,REDUCED TO 0.50 MG 2/DAY
     Route: 048
     Dates: start: 20230323, end: 20230328
  2. XANAX [Suspect]
     Active Substance: ALPRAZOLAM
     Dosage: 0.25 MILLIGRAM (0.25MLLIGRAM)
     Route: 048
  3. HALCION [Suspect]
     Active Substance: TRIAZOLAM
     Indication: Insomnia
     Dosage: 250 MICROGRAM (0.25 MG) (250UNIT OF MICROGRAMS)
     Route: 048
  4. VALIUM [Suspect]
     Active Substance: DIAZEPAM
     Indication: Anxiety
     Dosage: UNK
     Route: 065

REACTIONS (4)
  - Anisocoria [Recovering/Resolving]
  - Sopor [Recovering/Resolving]
  - Drug abuse [Unknown]
  - Somnolence [Recovered/Resolved]

NARRATIVE: CASE EVENT DATE: 20230323
